FAERS Safety Report 10452967 (Version 1)
Quarter: 2014Q3

REPORT INFORMATION
  Report Type: Report from Study
  Country: CA (occurrence: CA)
  Receive Date: 20140915
  Receipt Date: 20140915
  Transmission Date: 20150326
  Serious: Yes (Hospitalization)
  Sender: FDA-Public Use
  Company Number: CA-JNJFOC-20140908018

PATIENT
  Age: 54 Year
  Sex: Female
  Weight: 117 kg

DRUGS (1)
  1. REMICADE [Suspect]
     Active Substance: INFLIXIMAB
     Indication: COLITIS ULCERATIVE
     Route: 042
     Dates: start: 20110913

REACTIONS (2)
  - Herpes zoster [Unknown]
  - Ankle fracture [Unknown]

NARRATIVE: CASE EVENT DATE: 20140908
